FAERS Safety Report 18458210 (Version 1)
Quarter: 2020Q4

REPORT INFORMATION
  Report Type: Spontaneous
  Country: US (occurrence: US)
  Receive Date: 20201103
  Receipt Date: 20201103
  Transmission Date: 20210114
  Serious: No
  Sender: FDA-Public Use
  Company Number: US-SAGE-2020SAGE000095

PATIENT

DRUGS (12)
  1. LORAZEPAM. [Suspect]
     Active Substance: LORAZEPAM
     Indication: ANTIDEPRESSANT THERAPY
     Dosage: DAY 0
     Route: 065
  2. LITHIUM. [Suspect]
     Active Substance: LITHIUM
     Indication: ANTIDEPRESSANT THERAPY
     Dosage: DAY 0
     Route: 065
  3. VENLAFAXINE [Suspect]
     Active Substance: VENLAFAXINE HYDROCHLORIDE
     Indication: ANTIDEPRESSANT THERAPY
     Dosage: DAY 0
     Route: 065
  4. ARIPIPRAZOLE. [Suspect]
     Active Substance: ARIPIPRAZOLE
     Indication: ANTIDEPRESSANT THERAPY
     Dosage: DAY 3
     Route: 065
  5. ZULRESSO [Suspect]
     Active Substance: BREXANOLONE
     Indication: PERINATAL DEPRESSION
     Dosage: UNK
     Route: 042
  6. ARIPIPRAZOLE. [Suspect]
     Active Substance: ARIPIPRAZOLE
     Dosage: DAY 7
     Route: 065
  7. QUETIAPINE. [Suspect]
     Active Substance: QUETIAPINE
     Indication: PRODUCT USED FOR UNKNOWN INDICATION
     Dosage: DAY 4
     Route: 065
  8. DOXEPIN [Suspect]
     Active Substance: DOXEPIN
     Indication: ANTIDEPRESSANT THERAPY
     Dosage: DAY 4
     Route: 065
  9. BENZATROPINE [Suspect]
     Active Substance: BENZTROPINE
     Indication: ANTIDEPRESSANT THERAPY
     Dosage: DAY 7
     Route: 065
  10. LORAZEPAM. [Suspect]
     Active Substance: LORAZEPAM
     Dosage: WEEK 5-6
     Route: 065
  11. ARIPIPRAZOLE. [Suspect]
     Active Substance: ARIPIPRAZOLE
     Dosage: WEEK 5-6
     Route: 065
  12. ZIPRASIDONE. [Suspect]
     Active Substance: ZIPRASIDONE
     Indication: ANTIDEPRESSANT THERAPY
     Dosage: DAY 0
     Route: 065

REACTIONS (7)
  - Anxiety [Recovered/Resolved]
  - Depression [Recovered/Resolved]
  - Emotional disorder [Recovered/Resolved]
  - Feeling guilty [Recovered/Resolved]
  - Suicidal ideation [Recovered/Resolved]
  - Poor quality sleep [Recovered/Resolved]
  - Decreased appetite [Recovered/Resolved]
